FAERS Safety Report 6617084-2 (Version None)
Quarter: 2010Q1

REPORT INFORMATION
  Report Type: 
  Country: None (occurrence: None)
  Receive Date: 20100307
  Receipt Date: 20100225
  Transmission Date: 20100710
  Serious: Yes (Hospitalization)
  Sender: FDA-Public Use
  Company Number: JP-BRISTOL-MYERS SQUIBB COMPANY-14955710

PATIENT
  Age: 66 Year
  Sex: Male
  Weight: 51 kg

DRUGS (4)
  1. ERBITUX [Suspect]
     Indication: RECTAL CANCER
     Dosage: 250MG/M2: 20JAN2010-10FEB2010
     Route: 041
     Dates: start: 20091222, end: 20100210
  2. IRINOTECAN [Concomitant]
     Indication: RECTAL CANCER
     Route: 041
     Dates: start: 20091222, end: 20091222
  3. POLARAMINE [Concomitant]
     Indication: PREMEDICATION
     Dosage: EVERY TIME BEFORE ERBITUX INFUSION.
     Route: 041
     Dates: start: 20091222, end: 20100210
  4. DEXART [Concomitant]
     Indication: PREMEDICATION
     Dosage: EVERY TIME BEFORE ERBITUX INFUSION
     Route: 041
     Dates: start: 20091222, end: 20100210

REACTIONS (1)
  - INFUSION RELATED REACTION [None]
